FAERS Safety Report 6316554-4 (Version None)
Quarter: 2009Q3

REPORT INFORMATION
  Report Type: 
  Country: None (occurrence: None)
  Receive Date: 20090820
  Receipt Date: 20090810
  Transmission Date: 20100115
  Serious: Yes (Death)
  Sender: FDA-Public Use
  Company Number: GB-JNJFOC-20090803208

PATIENT
  Age: 74 Year
  Sex: Female

DRUGS (6)
  1. REMICADE [Suspect]
     Indication: RHEUMATOID ARTHRITIS
     Route: 042
  2. METHOTREXATE [Concomitant]
  3. BENDROFLUAZIDE [Concomitant]
  4. CELEBREX [Concomitant]
  5. CO-CODAMOL [Concomitant]
  6. FOLIC ACID [Concomitant]

REACTIONS (1)
  - BREAST CANCER METASTATIC [None]
